FAERS Safety Report 12758619 (Version 2)
Quarter: 2016Q3

REPORT INFORMATION
  Report Type: Spontaneous
  Country: JP (occurrence: JP)
  Receive Date: 20160919
  Receipt Date: 20160923
  Transmission Date: 20161109
  Serious: Yes (Life-Threatening, Hospitalization, Other)
  Sender: FDA-Public Use
  Company Number: JP-PFIZER INC-2016430725

PATIENT
  Age: 6 Decade
  Sex: Female

DRUGS (7)
  1. RHEUMATREX [Suspect]
     Active Substance: METHOTREXATE SODIUM
     Indication: RHEUMATOID ARTHRITIS
     Dosage: 12 MG, WEEKLY
     Route: 048
  2. BAKTAR [Concomitant]
     Active Substance: SULFAMETHOXAZOLE\TRIMETHOPRIM
     Dosage: .5 MG, UNK
  3. ERYTHROCIN [Concomitant]
     Active Substance: ERYTHROMYCIN LACTOBIONATE
     Dosage: 20 MG, UNK
  4. PREDONINE [Concomitant]
     Active Substance: PREDNISOLONE\PREDNISOLONE ACETATE\PREDNISOLONE SODIUM SUCCINATE
     Dosage: 11 MG, UNK
  5. CARERAM [Concomitant]
     Active Substance: IGURATIMOD
     Dosage: 50 MG, UNK
  6. FOLIAMIN [Concomitant]
     Active Substance: FOLIC ACID
     Dosage: 5 MG, UNK
  7. TAKEPRON OD [Concomitant]
     Active Substance: LANSOPRAZOLE
     Dosage: 1 DF, UNK

REACTIONS (1)
  - Chronic myeloid leukaemia [Not Recovered/Not Resolved]

NARRATIVE: CASE EVENT DATE: 201606
